FAERS Safety Report 9033065 (Version 1)
Quarter: 2013Q1

REPORT INFORMATION
  Report Type: Spontaneous
  Country: BR (occurrence: BR)
  Receive Date: 20130128
  Receipt Date: 20130128
  Transmission Date: 20140127
  Serious: Yes (Death, Other)
  Sender: FDA-Public Use
  Company Number: PHHY2010BR72526

PATIENT
  Age: 82 Year
  Sex: Female

DRUGS (2)
  1. DIOVAN AMLO FIX [Suspect]
     Indication: HYPERTENSION
     Dosage: 1 DF (320/5MG) DAILY
  2. DIOVAN AMLO FIX [Suspect]
     Dosage: 1 DF (320/10MG) DAILY
     Dates: start: 2012

REACTIONS (3)
  - Neoplasm malignant [Fatal]
  - Local swelling [Not Recovered/Not Resolved]
  - Pain in extremity [Recovered/Resolved]
